FAERS Safety Report 11346519 (Version 1)
Quarter: 2015Q3

REPORT INFORMATION
  Report Type: Spontaneous
  Country: US (occurrence: US)
  Receive Date: 20150803
  Receipt Date: 20150803
  Transmission Date: 20151125
  Serious: Yes (Other)
  Sender: FDA-Public Use
  Company Number: US-ELI_LILLY_AND_COMPANY-US201010006442

PATIENT
  Age: 12 Year
  Sex: Male

DRUGS (3)
  1. STRATTERA [Suspect]
     Active Substance: ATOMOXETINE HYDROCHLORIDE
     Indication: ATTENTION DEFICIT/HYPERACTIVITY DISORDER
     Dosage: 18 MG, UNKNOWN
     Route: 065
     Dates: start: 20101013
  2. CONCERTA [Concomitant]
     Active Substance: METHYLPHENIDATE HYDROCHLORIDE
     Dosage: 27 MG, UNKNOWN
     Route: 065
  3. PROZAC [Concomitant]
     Active Substance: FLUOXETINE HYDROCHLORIDE
     Dosage: UNK, UNKNOWN
     Route: 065

REACTIONS (3)
  - Aggression [Unknown]
  - Panic attack [Unknown]
  - Irritability [Unknown]
